FAERS Safety Report 17046491 (Version 2)
Quarter: 2019Q4

REPORT INFORMATION
  Report Type: Spontaneous
  Country: US (occurrence: US)
  Receive Date: 20191119
  Receipt Date: 20191119
  Transmission Date: 20200122
  Serious: No
  Sender: FDA-Public Use
  Company Number: US-CELGENEUS-USA-20191104228

PATIENT
  Sex: Male

DRUGS (6)
  1. THALOMID [Suspect]
     Active Substance: THALIDOMIDE
     Indication: OFF LABEL USE
     Dosage: 100-200 MILLIGRAM
     Route: 048
     Dates: start: 201606
  2. THALOMID [Suspect]
     Active Substance: THALIDOMIDE
     Dosage: 100 MILLIGRAM
     Route: 048
     Dates: start: 201808
  3. THALOMID [Suspect]
     Active Substance: THALIDOMIDE
     Dosage: 50-100 MILLIGRAM
     Route: 048
     Dates: start: 201902
  4. THALOMID [Suspect]
     Active Substance: THALIDOMIDE
     Dosage: 50 MILLIGRAM
     Route: 048
     Dates: start: 201908
  5. THALOMID [Suspect]
     Active Substance: THALIDOMIDE
     Indication: CUTANEOUS LUPUS ERYTHEMATOSUS
     Dosage: 50 MILLIGRAM
     Route: 048
     Dates: start: 201604
  6. THALOMID [Suspect]
     Active Substance: THALIDOMIDE
     Dosage: 150-100 MILLIGRAM
     Route: 048
     Dates: start: 201611

REACTIONS (1)
  - Cutaneous lupus erythematosus [Unknown]

NARRATIVE: CASE EVENT DATE: 2019
